FAERS Safety Report 5807030-3 (Version None)
Quarter: 2008Q3

REPORT INFORMATION
  Report Type: 
  Country: None (occurrence: None)
  Receive Date: 20080711
  Receipt Date: 20080702
  Transmission Date: 20090109
  Serious: Yes (Hospitalization, Other)
  Sender: FDA-Public Use
  Company Number: GB-JNJFOC-20080606527

PATIENT
  Sex: Female
  Weight: 56 kg

DRUGS (7)
  1. REMICADE [Suspect]
     Route: 042
  2. REMICADE [Suspect]
     Indication: RHEUMATOID ARTHRITIS
     Route: 042
  3. METHOTREXATE [Concomitant]
  4. COPROXAMOL [Concomitant]
  5. FOLIC ACID [Concomitant]
  6. FOSAMAX [Concomitant]
  7. VOLTAREN [Concomitant]

REACTIONS (2)
  - FALL [None]
  - JOINT DISLOCATION [None]
